FAERS Safety Report 16316605 (Version 1)
Quarter: 2019Q2

REPORT INFORMATION
  Report Type: Spontaneous
  Country: US (occurrence: US)
  Receive Date: 20190515
  Receipt Date: 20190515
  Transmission Date: 20190711
  Serious: No
  Sender: FDA-Public Use
  Company Number: US-TOPROL ACQUISITION LLC-2019-TOP-000034

PATIENT
  Sex: Female
  Weight: 56.69 kg

DRUGS (5)
  1. NEXIUM 24HR [Concomitant]
     Active Substance: ESOMEPRAZOLE MAGNESIUM
     Indication: ABDOMINAL PAIN UPPER
     Dosage: 40 MG, BID
     Route: 048
     Dates: start: 201902, end: 20190502
  2. METOPROLOL SUCCINATE. [Suspect]
     Active Substance: METOPROLOL SUCCINATE
     Indication: TACHYCARDIA
     Dosage: 50 MG, BID
  3. SYNTHROID [Concomitant]
     Active Substance: LEVOTHYROXINE SODIUM
     Indication: PRODUCT USED FOR UNKNOWN INDICATION
     Dosage: 75 MG, UNK
  4. ESOMEPRAZOLE MAGNESIUM. [Concomitant]
     Active Substance: ESOMEPRAZOLE MAGNESIUM
     Indication: ABDOMINAL PAIN UPPER
     Dosage: 40 MG, BID
     Route: 048
     Dates: start: 20190501, end: 20190502
  5. TOPAMAX [Concomitant]
     Active Substance: TOPIRAMATE
     Indication: CLUSTER HEADACHE
     Dosage: 100 MG, UNK

REACTIONS (4)
  - Inappropriate schedule of product administration [Unknown]
  - Limb discomfort [Unknown]
  - Hypotension [Unknown]
  - Off label use [Unknown]
